FAERS Safety Report 13825193 (Version 5)
Quarter: 2017Q3

REPORT INFORMATION
  Report Type: Spontaneous
  Country: PL (occurrence: PL)
  Receive Date: 20170802
  Receipt Date: 20170913
  Transmission Date: 20171127
  Serious: Yes (Death, Life-Threatening, Hospitalization, Other)
  Sender: FDA-Public Use
  Company Number: PL-009507513-1707POL011743

PATIENT
  Age: 84 Year
  Sex: Male

DRUGS (4)
  1. KEYTRUDA [Suspect]
     Active Substance: PEMBROLIZUMAB
     Indication: MALIGNANT NEOPLASM PROGRESSION
  2. AMLOZEK [Concomitant]
     Active Substance: AMLODIPINE BESYLATE
     Indication: HYPERTENSION
  3. KEYTRUDA [Suspect]
     Active Substance: PEMBROLIZUMAB
     Indication: SQUAMOUS CELL CARCINOMA OF LUNG
     Dosage: 200 MG, EVERY 3 WEEKS
     Route: 042
     Dates: start: 20170710, end: 20170723
  4. BISOCARD [Concomitant]
     Active Substance: BISOPROLOL
     Indication: HYPERTENSION

REACTIONS (10)
  - Fatigue [Recovering/Resolving]
  - Dyspnoea [Recovering/Resolving]
  - Oxygen saturation abnormal [Recovered/Resolved]
  - Lung infiltration [Unknown]
  - General physical health deterioration [Unknown]
  - Pneumonitis [Recovering/Resolving]
  - Hypersensitivity [Unknown]
  - Death [Fatal]
  - Malaise [Unknown]
  - Respiratory failure [Unknown]

NARRATIVE: CASE EVENT DATE: 201707
